FAERS Safety Report 9814646 (Version 1)
Quarter: 2014Q1

REPORT INFORMATION
  Report Type: Spontaneous
  Country: US (occurrence: US)
  Receive Date: 20140113
  Receipt Date: 20140113
  Transmission Date: 20141002
  Serious: Yes (Death, Hospitalization)
  Sender: FDA-Public Use
  Company Number: US-MYLANLABS-2014S1000274

PATIENT
  Sex: Female

DRUGS (9)
  1. VANCOMYCIN [Suspect]
     Route: 065
  2. DAPTOMYCIN [Suspect]
     Indication: STAPHYLOCOCCAL BACTERAEMIA
     Route: 065
  3. DAPTOMYCIN [Suspect]
     Indication: STAPHYLOCOCCAL BACTERAEMIA
     Dosage: 8 MG/KG
     Route: 065
  4. COTRIMOXAZOLE [Suspect]
     Dosage: 1600/320MG TWICE DAILY
     Route: 048
  5. ASPIRIN [Concomitant]
     Route: 065
  6. FUROSEMIDE [Concomitant]
     Route: 065
  7. CARVEDILOL [Concomitant]
     Route: 065
  8. WARFARIN [Concomitant]
     Route: 065
  9. LISINOPRIL [Concomitant]
     Route: 065

REACTIONS (3)
  - Peritoneal haemorrhage [Fatal]
  - Staphylococcal infection [Recovered/Resolved]
  - Creatinine renal clearance decreased [Unknown]
